FAERS Safety Report 22600766 (Version 1)
Quarter: 2023Q2

REPORT INFORMATION
  Report Type: Spontaneous
  Country: US (occurrence: US)
  Receive Date: 20230614
  Receipt Date: 20230614
  Transmission Date: 20230721
  Serious: Yes (Other)
  Sender: FDA-Public Use
  Company Number: US-BAYER-2023A079446

PATIENT
  Age: 18 Year
  Sex: Male

DRUGS (4)
  1. JIVI [Suspect]
     Active Substance: DAMOCTOCOG ALFA PEGOL
     Dosage: 4272 IU
  2. JIVI [Suspect]
     Active Substance: DAMOCTOCOG ALFA PEGOL
     Dosage: 1 DF, FOR THE RIGHT THIGH BLEED TREATMENT
     Dates: start: 20230516, end: 20230516
  3. JIVI [Suspect]
     Active Substance: DAMOCTOCOG ALFA PEGOL
     Dosage: 1 DF, FOR THE LEFT KNEE BLEED TREATMENT
     Dates: start: 20230519, end: 20230519
  4. JIVI [Suspect]
     Active Substance: DAMOCTOCOG ALFA PEGOL
     Dosage: 1 DF, FOR THE LEFT WRIST FRACTURE TREATMENT
     Dates: start: 20230523, end: 20230523

REACTIONS (5)
  - Haemorrhage [Recovered/Resolved]
  - Haemarthrosis [Recovered/Resolved]
  - Wrist fracture [None]
  - Joint injury [None]
  - Bone contusion [None]

NARRATIVE: CASE EVENT DATE: 20230516
